FAERS Safety Report 11123758 (Version 1)
Quarter: 2015Q2

REPORT INFORMATION
  Report Type: Spontaneous
  Country: SI (occurrence: SI)
  Receive Date: 20150519
  Receipt Date: 20150519
  Transmission Date: 20150821
  Serious: Yes (Life-Threatening, Hospitalization, Other)
  Sender: FDA-Public Use
  Company Number: SI-MYLANLABS-2015M1016224

PATIENT

DRUGS (9)
  1. FONDAPARINUX [Suspect]
     Active Substance: FONDAPARINUX
     Indication: OFF LABEL USE
  2. LANITOP [Concomitant]
     Active Substance: METILDIGOXIN
     Route: 048
  3. CRESTOR [Concomitant]
     Active Substance: ROSUVASTATIN CALCIUM
     Route: 048
  4. FONDAPARINUX [Suspect]
     Active Substance: FONDAPARINUX
     Indication: ATRIAL FIBRILLATION
     Dosage: 2.5 MG, QD
     Route: 058
     Dates: start: 20140609, end: 20150422
  5. ACIPAN [Concomitant]
     Route: 048
  6. INSULIN                            /00646001/ [Concomitant]
     Active Substance: INSULIN NOS
  7. NEBILET [Concomitant]
     Active Substance: NEBIVOLOL
     Route: 048
  8. ALLOPURINOL. [Concomitant]
     Active Substance: ALLOPURINOL
     Route: 048
  9. EDEMID [Concomitant]
     Route: 048

REACTIONS (2)
  - Tracheal haemorrhage [Recovered/Resolved]
  - Off label use [Unknown]

NARRATIVE: CASE EVENT DATE: 20140609
